FAERS Safety Report 21467171 (Version 2)
Quarter: 2022Q4

REPORT INFORMATION
  Report Type: Report from Study
  Country: FR (occurrence: FR)
  Receive Date: 20221017
  Receipt Date: 20221209
  Transmission Date: 20230113
  Serious: Yes (Hospitalization)
  Sender: FDA-Public Use
  Company Number: FR-TAKEDA-2022TUS074081

PATIENT
  Sex: Male

DRUGS (41)
  1. TEDUGLUTIDE [Suspect]
     Active Substance: TEDUGLUTIDE
     Indication: Short-bowel syndrome
     Dosage: 2.85 MILLIGRAM, QD
     Route: 042
     Dates: start: 20160115, end: 20170706
  2. TEDUGLUTIDE [Suspect]
     Active Substance: TEDUGLUTIDE
     Indication: Short-bowel syndrome
     Dosage: 2.85 MILLIGRAM, QD
     Route: 042
     Dates: start: 20160115, end: 20170706
  3. TEDUGLUTIDE [Suspect]
     Active Substance: TEDUGLUTIDE
     Indication: Short-bowel syndrome
     Dosage: 2.85 MILLIGRAM, QD
     Route: 042
     Dates: start: 20160115, end: 20170706
  4. TEDUGLUTIDE [Suspect]
     Active Substance: TEDUGLUTIDE
     Indication: Short-bowel syndrome
     Dosage: 2.85 MILLIGRAM, QD
     Route: 042
     Dates: start: 20160115, end: 20170706
  5. TEDUGLUTIDE [Suspect]
     Active Substance: TEDUGLUTIDE
     Dosage: 2.85 MILLIGRAM, 3/WEEK
     Route: 042
     Dates: start: 20170706, end: 20170901
  6. TEDUGLUTIDE [Suspect]
     Active Substance: TEDUGLUTIDE
     Dosage: 2.85 MILLIGRAM, 3/WEEK
     Route: 042
     Dates: start: 20170706, end: 20170901
  7. TEDUGLUTIDE [Suspect]
     Active Substance: TEDUGLUTIDE
     Dosage: 2.85 MILLIGRAM, 3/WEEK
     Route: 042
     Dates: start: 20170706, end: 20170901
  8. TEDUGLUTIDE [Suspect]
     Active Substance: TEDUGLUTIDE
     Dosage: 2.85 MILLIGRAM, 3/WEEK
     Route: 042
     Dates: start: 20170706, end: 20170901
  9. TEDUGLUTIDE [Suspect]
     Active Substance: TEDUGLUTIDE
     Dosage: 2.8 MILLIGRAM, QD
     Route: 042
     Dates: start: 20180108
  10. TEDUGLUTIDE [Suspect]
     Active Substance: TEDUGLUTIDE
     Dosage: 2.8 MILLIGRAM, QD
     Route: 042
     Dates: start: 20180108
  11. TEDUGLUTIDE [Suspect]
     Active Substance: TEDUGLUTIDE
     Dosage: 2.8 MILLIGRAM, QD
     Route: 042
     Dates: start: 20180108
  12. TEDUGLUTIDE [Suspect]
     Active Substance: TEDUGLUTIDE
     Dosage: 2.8 MILLIGRAM, QD
     Route: 042
     Dates: start: 20180108
  13. ESOMEPRAZOLE [Concomitant]
     Active Substance: ESOMEPRAZOLE
     Indication: Diarrhoea
     Dosage: 40 MILLIGRAM, BID
     Route: 048
  14. KARDEGIC [Concomitant]
     Active Substance: ASPIRIN DL-LYSINE
     Indication: Cerebrovascular accident
     Dosage: 160 MILLIGRAM, QD
     Route: 048
  15. POTASSIUM CHLORIDE [Concomitant]
     Active Substance: POTASSIUM CHLORIDE
     Indication: Supplementation therapy
     Dosage: 600 MILLIGRAM, TID
     Route: 048
  16. MAGNE B6 [Concomitant]
     Active Substance: MAGNESIUM\PYRIDOXINE
     Indication: Supplementation therapy
     Dosage: 50 MILLIGRAM, BID
     Route: 048
     Dates: end: 2017
  17. MAGNE B6 [Concomitant]
     Active Substance: MAGNESIUM\PYRIDOXINE
     Dosage: 50 MILLIGRAM, TID
     Route: 048
     Dates: start: 2017
  18. RISPERDAL [Concomitant]
     Active Substance: RISPERIDONE
     Indication: Mental disorder
     Dosage: 2 MILLIGRAM, BID
     Route: 048
     Dates: end: 2017
  19. RISPERDAL [Concomitant]
     Active Substance: RISPERIDONE
     Dosage: 2 MILLIGRAM, QD
     Route: 048
     Dates: start: 2017
  20. XANAX [Concomitant]
     Active Substance: ALPRAZOLAM
     Indication: Anxiety
     Dosage: 0.25 MILLIGRAM, TID
     Route: 048
     Dates: start: 2009
  21. VALPROMIDE [Concomitant]
     Active Substance: VALPROMIDE
     Indication: Mental disorder
     Dosage: 300 MILLIGRAM, BID
     Route: 048
  22. RAMIPRIL [Concomitant]
     Active Substance: RAMIPRIL
     Indication: Hypertension
     Dosage: 5 MILLIGRAM, QD
     Route: 048
  23. VENLAFAXINE [Concomitant]
     Active Substance: VENLAFAXINE HYDROCHLORIDE
     Indication: Anxiety
     Dosage: 75 MILLIGRAM, QD
     Route: 048
  24. DAFALGAN CODEINE [Concomitant]
     Active Substance: ACETAMINOPHEN\CODEINE PHOSPHATE
     Indication: Pain
     Dosage: 300 MILLIGRAM, TID
     Route: 048
  25. ZOPICLONE [Concomitant]
     Active Substance: ZOPICLONE
     Indication: Sleep disorder
     Dosage: 10 MILLIGRAM, QD
     Route: 048
  26. QUESTRAN [Concomitant]
     Active Substance: CHOLESTYRAMINE
     Indication: Diarrhoea
     Dosage: 4000 MILLIGRAM, TID
     Route: 048
     Dates: start: 20171106
  27. LOPERAMIDE [Concomitant]
     Active Substance: LOPERAMIDE
     Indication: Diarrhoea
     Dosage: 2 MILLIGRAM, TID
     Route: 048
     Dates: start: 20171106
  28. ACLASTA [Concomitant]
     Active Substance: ZOLEDRONIC ACID
     Indication: Osteoporosis
     Dosage: 5 MILLIGRAM, SINGLE
     Route: 042
     Dates: start: 2017, end: 2017
  29. ACLASTA [Concomitant]
     Active Substance: ZOLEDRONIC ACID
     Dosage: 5 MILLIGRAM, SINGLE
     Route: 042
     Dates: start: 201608, end: 201608
  30. VITAMIN D3 [Concomitant]
     Active Substance: CHOLECALCIFEROL
     Indication: Supplementation therapy
     Dosage: 200000 INTERNATIONAL UNIT, SINGLE
     Route: 030
     Dates: start: 201603, end: 201603
  31. VITAMIN D3 [Concomitant]
     Active Substance: CHOLECALCIFEROL
     Dosage: 200000 INTERNATIONAL UNIT, SINGLE
     Route: 030
     Dates: start: 201703, end: 201703
  32. VITAMIN D3 [Concomitant]
     Active Substance: CHOLECALCIFEROL
     Dosage: 200000 INTERNATIONAL UNIT, SINGLE
     Route: 030
     Dates: start: 201609, end: 201609
  33. VITAMIN D3 [Concomitant]
     Active Substance: CHOLECALCIFEROL
     Dosage: 200000 INTERNATIONAL UNIT, SINGLE
     Route: 030
     Dates: start: 201709, end: 201709
  34. CYANOCOBALAMIN [Concomitant]
     Active Substance: CYANOCOBALAMIN
     Indication: Supplementation therapy
     Dosage: 1 MILLIGRAM, SINGLE
     Route: 030
     Dates: start: 201603, end: 201603
  35. CYANOCOBALAMIN [Concomitant]
     Active Substance: CYANOCOBALAMIN
     Dosage: 1 MILLIGRAM, SINGLE
     Route: 030
     Dates: start: 201609, end: 201609
  36. CYANOCOBALAMIN [Concomitant]
     Active Substance: CYANOCOBALAMIN
     Dosage: 1 MILLIGRAM, SINGLE
     Route: 030
     Dates: start: 201703, end: 201703
  37. CYANOCOBALAMIN [Concomitant]
     Active Substance: CYANOCOBALAMIN
     Dosage: 1 MILLIGRAM, SINGLE
     Route: 030
     Dates: start: 201709, end: 201709
  38. VANCOMYCIN [Concomitant]
     Active Substance: VANCOMYCIN
     Indication: Device related infection
     Dosage: 30 MILLIGRAM/KILOGRAM
     Route: 042
     Dates: start: 20170803, end: 20170813
  39. VANCOMYCIN [Concomitant]
     Active Substance: VANCOMYCIN
     Indication: Dermatitis infected
     Dosage: UNK
     Route: 042
     Dates: start: 201806, end: 201806
  40. LINEZOLID [Concomitant]
     Active Substance: LINEZOLID
     Indication: Dermatitis infected
     Dosage: UNK
     Route: 048
     Dates: start: 201806, end: 201806
  41. PIPERACILLIN SODIUM\TAZOBACTAM SODIUM [Concomitant]
     Active Substance: PIPERACILLIN SODIUM\TAZOBACTAM SODIUM
     Indication: Dermatitis infected
     Dosage: UNK
     Route: 042
     Dates: start: 201806, end: 201806

REACTIONS (1)
  - Gait disturbance [Not Recovered/Not Resolved]

NARRATIVE: CASE EVENT DATE: 20181022
